FAERS Safety Report 7001283-4 (Version None)
Quarter: 2010Q3

REPORT INFORMATION
  Report Type: 
  Country: None (occurrence: None)
  Receive Date: 20100920
  Receipt Date: 20091109
  Transmission Date: 20110219
  Serious: No
  Sender: FDA-Public Use
  Company Number: US-ASTRAZENECA-2009SE25716

PATIENT
  Sex: Female

DRUGS (3)
  1. SEROQUEL XR [Suspect]
     Route: 048
  2. INVEGA [Concomitant]
  3. LEXAPRO [Concomitant]

REACTIONS (5)
  - DISTURBANCE IN ATTENTION [None]
  - FATIGUE [None]
  - HYPERSOMNIA [None]
  - SOMNOLENCE [None]
  - WEIGHT INCREASED [None]
